FAERS Safety Report 17404466 (Version 1)
Quarter: 2020Q1

REPORT INFORMATION
  Report Type: Spontaneous
  Country: FR (occurrence: FR)
  Receive Date: 20200211
  Receipt Date: 20200211
  Transmission Date: 20200409
  Serious: Yes (Death, Other)
  Sender: FDA-Public Use
  Company Number: FR-GILEAD-2020-0450460

PATIENT
  Age: 70 Year
  Sex: Male
  Weight: 98.3 kg

DRUGS (1)
  1. YESCARTA [Suspect]
     Active Substance: AXICABTAGENE CILOLEUCEL
     Indication: B-CELL LYMPHOMA
     Route: 041
     Dates: start: 20191203, end: 20191203

REACTIONS (5)
  - Cytokine release syndrome [Fatal]
  - Encephalopathy [Fatal]
  - Pancytopenia [Fatal]
  - Pyrexia [Fatal]
  - Neurotoxicity [Fatal]

NARRATIVE: CASE EVENT DATE: 20191203
